FAERS Safety Report 7631957-3 (Version None)
Quarter: 2011Q3

REPORT INFORMATION
  Report Type: 
  Country: None (occurrence: None)
  Receive Date: 20110725
  Receipt Date: 20110516
  Transmission Date: 20111222
  Serious: No
  Sender: FDA-Public Use
  Company Number: US-BRISTOL-MYERS SQUIBB COMPANY-15748320

PATIENT
  Age: 86 Year
  Sex: Male
  Weight: 66 kg

DRUGS (5)
  1. WARFARIN SODIUM [Suspect]
     Dosage: RESTARTED ON APR2011 5MG TABS/HALF OR WHOLE DAILY
  2. SIMVASTATIN [Concomitant]
     Indication: BLOOD CHOLESTEROL INCREASED
  3. GEMFIBROZIL [Concomitant]
     Indication: BLOOD TRIGLYCERIDES
  4. ATENOLOL [Concomitant]
  5. COUMADIN [Suspect]

REACTIONS (1)
  - INTERNATIONAL NORMALISED RATIO FLUCTUATION [None]
